FAERS Safety Report 17976381 (Version 1)
Quarter: 2020Q3

REPORT INFORMATION
  Report Type: Report from Study
  Country: None (occurrence: US)
  Receive Date: 20200703
  Receipt Date: 20200703
  Transmission Date: 20201103
  Serious: Yes (Other)
  Sender: FDA-Public Use
  Company Number: US-ABBVIE-20K-163-3367948-00

PATIENT
  Sex: Female

DRUGS (1)
  1. HUMIRA [Suspect]
     Active Substance: ADALIMUMAB
     Indication: HIDRADENITIS
     Route: 058

REACTIONS (6)
  - Depression [Recovering/Resolving]
  - Vomiting [Recovering/Resolving]
  - Blindness [Recovering/Resolving]
  - Nausea [Recovering/Resolving]
  - Joint range of motion decreased [Recovering/Resolving]
  - Hidradenitis [Recovering/Resolving]
